FAERS Safety Report 10810698 (Version 1)
Quarter: 2015Q1

REPORT INFORMATION
  Report Type: Spontaneous
  Country: US (occurrence: None)
  Receive Date: 20150213
  Receipt Date: 20150213
  Transmission Date: 20150721
  Serious: Yes (Life-Threatening, Hospitalization, Disabling, Other)
  Sender: FDA-Public Use
  Company Number: None

PATIENT
  Age: 44 Year
  Sex: Female
  Weight: 40.82 kg

DRUGS (1)
  1. CANSEMA BLACK SALVE (ZINC CHLORIDE) [Suspect]
     Active Substance: ZINC CHLORIDE
     Indication: NEOPLASM MALIGNANT
     Dosage: ONCE A DAY, ON SKIN/TOPICAL
     Route: 061
     Dates: start: 20141112, end: 20141114

REACTIONS (5)
  - Infection [None]
  - Eschar [None]
  - Application site burn [None]
  - Burns third degree [None]
  - Product quality issue [None]

NARRATIVE: CASE EVENT DATE: 20141114
